FAERS Safety Report 4477909-6 (Version None)
Quarter: 2004Q3

REPORT INFORMATION
  Report Type: 
  Country: None (occurrence: None)
  Receive Date: 20040923
  Receipt Date: 20040804
  Transmission Date: 20050211
  Serious: No
  Sender: FDA-Public Use
  Company Number: USA040874622

PATIENT
  Age: 56 Year
  Sex: Female
  Weight: 63 kg

DRUGS (5)
  1. FORTEO [Suspect]
     Indication: OSTEOPOROSIS
     Dates: start: 20040701
  2. NEXIUM [Concomitant]
  3. HORMONE [Concomitant]
  4. CALTRATE (CALCIUM CARBONATE) [Concomitant]
  5. VIOXX [Concomitant]

REACTIONS (2)
  - DYSGEUSIA [None]
  - MUSCLE CRAMP [None]
